FAERS Safety Report 5490367-8 (Version None)
Quarter: 2007Q4

REPORT INFORMATION
  Report Type: 
  Country: None (occurrence: None)
  Receive Date: 20071015
  Receipt Date: 20070724
  Transmission Date: 20080405
  Serious: Yes (Hospitalization)
  Sender: FDA-Public Use
  Company Number: 2007SP002601

PATIENT
  Age: 45 Year
  Sex: Female

DRUGS (3)
  1. LUNESTA [Suspect]
     Indication: INSOMNIA
     Dosage: 3 MG;1X;ORAL
     Route: 048
     Dates: start: 20070701, end: 20070701
  2. PERCOCET [Concomitant]
  3. FLEXERIL [Concomitant]

REACTIONS (1)
  - ANAPHYLACTIC REACTION [None]
